FAERS Safety Report 15240378 (Version 2)
Quarter: 2018Q3

REPORT INFORMATION
  Report Type: Spontaneous
  Country: US (occurrence: US)
  Receive Date: 20180804
  Receipt Date: 20180807
  Transmission Date: 20181010
  Serious: Yes (Other)
  Sender: FDA-Public Use
  Company Number: US-009507513-1808USA001631

PATIENT
  Age: 3 Month
  Sex: Female

DRUGS (1)
  1. ELOCON [Suspect]
     Active Substance: MOMETASONE FUROATE
     Indication: SEBORRHOEIC DERMATITIS
     Dosage: UNK
     Route: 061

REACTIONS (2)
  - Hypothalamic pituitary adrenal axis suppression [Unknown]
  - Cushing^s syndrome [Unknown]
